FAERS Safety Report 6209414-0 (Version None)
Quarter: 2009Q2

REPORT INFORMATION
  Report Type: 
  Country: None (occurrence: None)
  Receive Date: 20090529
  Receipt Date: 20090520
  Transmission Date: 20091009
  Serious: Yes (Other)
  Sender: FDA-Public Use
  Company Number: AU-JNJFOC-20090501723

PATIENT
  Sex: Female
  Weight: 67 kg

DRUGS (4)
  1. INTELENCE [Suspect]
     Indication: HIV INFECTION
     Route: 048
  2. PREZISTA [Suspect]
     Indication: HIV INFECTION
     Route: 048
  3. RITONAVIR [Concomitant]
  4. RALTEGRAVIR [Concomitant]

REACTIONS (1)
  - PSYCHOTIC DISORDER [None]
